FAERS Safety Report 10488437 (Version 1)
Quarter: 2014Q4

REPORT INFORMATION
  Report Type: Spontaneous
  Country: US (occurrence: None)
  Receive Date: 20141001
  Receipt Date: 20141001
  Transmission Date: 20150528
  Serious: No
  Sender: FDA-Public Use
  Company Number: None

PATIENT
  Age: 29 Year
  Sex: Female
  Weight: 54.43 kg

DRUGS (1)
  1. PLAN B [Suspect]
     Active Substance: LEVONORGESTREL
     Indication: POST COITAL CONTRACEPTION
     Dosage: 1 PILL
     Dates: start: 20140909

REACTIONS (4)
  - Abdominal distension [None]
  - Adverse drug reaction [None]
  - Gastrointestinal inflammation [None]
  - Breast enlargement [None]

NARRATIVE: CASE EVENT DATE: 20140919
